FAERS Safety Report 4478413-1 (Version None)
Quarter: 2004Q4

REPORT INFORMATION
  Report Type: 
  Country: None (occurrence: None)
  Receive Date: 20041018
  Receipt Date: 20041018
  Transmission Date: 20050328
  Serious: Yes (Other)
  Sender: FDA-Public Use
  Company Number: None

PATIENT
  Age: 34 Year
  Sex: Female
  Weight: 65.318 kg

DRUGS (1)
  1. VENLAFAXINE SR 75 MG [Suspect]
     Indication: DEPRESSION
     Dosage: ONCE PO DAILY
     Route: 048

REACTIONS (1)
  - LIVER FUNCTION TEST ABNORMAL [None]
